FAERS Safety Report 23369489 (Version 2)
Quarter: 2024Q2

REPORT INFORMATION
  Report Type: Spontaneous
  Country: TR (occurrence: TR)
  Receive Date: 20240105
  Receipt Date: 20240402
  Transmission Date: 20240716
  Serious: Yes (Other)
  Sender: FDA-Public Use
  Company Number: TR-TEVA-VS-3135633

PATIENT
  Age: 15 Year
  Sex: Female

DRUGS (2)
  1. RISPERIDONE [Suspect]
     Active Substance: RISPERIDONE
     Indication: Oppositional defiant disorder
     Route: 065
  2. Osmotic release oral system-methylphenidate [Concomitant]
     Indication: Attention deficit hyperactivity disorder
     Route: 048

REACTIONS (1)
  - Vaginal haemorrhage [Recovered/Resolved]
